FAERS Safety Report 6827810-5 (Version None)
Quarter: 2010Q3

REPORT INFORMATION
  Report Type: 
  Country: None (occurrence: None)
  Receive Date: 20100709
  Receipt Date: 20070129
  Transmission Date: 20110219
  Serious: No
  Sender: FDA-Public Use
  Company Number: US-PFIZER INC-2007008814

PATIENT
  Sex: Male
  Weight: 90.72 kg

DRUGS (10)
  1. CHANTIX [Suspect]
     Indication: SMOKING CESSATION THERAPY
     Dates: start: 20070122
  2. NEXIUM [Concomitant]
  3. TRAZODONE [Concomitant]
  4. SPIRIVA [Concomitant]
  5. FORADIL [Concomitant]
  6. LEXAPRO [Concomitant]
  7. OXYCONTIN [Concomitant]
  8. FLEXERIL [Concomitant]
  9. XANAX [Concomitant]
  10. ANDROGEL [Concomitant]

REACTIONS (1)
  - SOMNOLENCE [None]
